FAERS Safety Report 7588700-6 (Version None)
Quarter: 2011Q3

REPORT INFORMATION
  Report Type: 
  Country: None (occurrence: None)
  Receive Date: 20110705
  Receipt Date: 20110623
  Transmission Date: 20111222
  Serious: Yes (Hospitalization, Other)
  Sender: FDA-Public Use
  Company Number: US-BAYER-2011-027770

PATIENT
  Age: 28 Year
  Sex: Female

DRUGS (4)
  1. YAZ [Suspect]
     Indication: PRODUCT USED FOR UNKNOWN INDICATION
     Dosage: UNK
     Dates: start: 20061201, end: 20101201
  2. METFORMIN HCL [Concomitant]
     Dosage: UNK
     Dates: start: 20090101
  3. LAMOTRIGINE [Concomitant]
     Dosage: UNK
     Dates: start: 20090301
  4. OXYCODONE HCL [Concomitant]
     Dosage: UNK
     Dates: start: 20090101

REACTIONS (4)
  - PANCREATITIS [None]
  - CHOLECYSTITIS CHRONIC [None]
  - GALLBLADDER DISORDER [None]
  - CHOLESTEROSIS [None]
